FAERS Safety Report 5020472-1 (Version None)
Quarter: 2006Q2

REPORT INFORMATION
  Report Type: 
  Country: None (occurrence: None)
  Receive Date: 20060602
  Receipt Date: 20060529
  Transmission Date: 20061013
  Serious: Yes (Hospitalization, Other)
  Sender: FDA-Public Use
  Company Number: ITWYE649124MAY06

PATIENT
  Age: 48 Year
  Sex: Female

DRUGS (26)
  1. SIROLIMUS (SIROLIMUS, TABLET) [Suspect]
     Indication: PROPHYLAXIS AGAINST TRANSPLANT REJECTION
     Dosage: SEE IMAGE
     Route: 048
     Dates: start: 20060410, end: 20060410
  2. SIROLIMUS (SIROLIMUS, TABLET) [Suspect]
     Indication: PROPHYLAXIS AGAINST TRANSPLANT REJECTION
     Dosage: SEE IMAGE
     Route: 048
     Dates: start: 20060411, end: 20060413
  3. SIROLIMUS (SIROLIMUS, TABLET) [Suspect]
     Indication: PROPHYLAXIS AGAINST TRANSPLANT REJECTION
     Dosage: SEE IMAGE
     Route: 048
     Dates: start: 20060414, end: 20060419
  4. SIROLIMUS (SIROLIMUS, TABLET) [Suspect]
     Indication: PROPHYLAXIS AGAINST TRANSPLANT REJECTION
     Dosage: SEE IMAGE
     Route: 048
     Dates: start: 20060420, end: 20060508
  5. SIROLIMUS (SIROLIMUS, TABLET) [Suspect]
     Indication: PROPHYLAXIS AGAINST TRANSPLANT REJECTION
     Dosage: SEE IMAGE
     Route: 048
     Dates: start: 20060509, end: 20060512
  6. SIROLIMUS (SIROLIMUS, TABLET) [Suspect]
     Indication: PROPHYLAXIS AGAINST TRANSPLANT REJECTION
     Dosage: SEE IMAGE
     Route: 048
     Dates: start: 20060513
  7. CYCLOSPORINE [Concomitant]
  8. METHYLPREDNISOLONE [Concomitant]
  9. PREDNISONE TAB [Concomitant]
  10. RANITIDINE [Concomitant]
  11. CEFOTAXIME SODIUM [Concomitant]
  12. DOPAMINE HCL [Concomitant]
  13. TRAMADOL HCL [Concomitant]
  14. FUROSEMIDE [Concomitant]
  15. ENOXAPARIN SODIUM [Concomitant]
  16. NYSTATIN [Concomitant]
  17. TYROSINE (TYROSINE) [Concomitant]
  18. ATENOLOL [Concomitant]
  19. CALCITRIOL [Concomitant]
  20. CALCIUM CARBONATE (CALCIUM CARBONATE) [Concomitant]
  21. POTGASSIUM CHLORIDE (POTASSIUM CHLORIDE) [Concomitant]
  22. AMLODIPINE [Concomitant]
  23. FLUVASTATIN (FLUVASTATIN) [Concomitant]
  24. GALENIC /SULFADIAZINE/TRIMETHOPRIM/ (SULFADIAZINE/TRIMETHOPRIM) [Concomitant]
  25. INSULIN [Concomitant]
  26. NEBIVOLOL (NEBIVOLOL) [Concomitant]

REACTIONS (5)
  - BLOOD CREATININE INCREASED [None]
  - GLOMERULAR FILTRATION RATE DECREASED [None]
  - RENAL INFARCT [None]
  - RENAL ISCHAEMIA [None]
  - RENAL NECROSIS [None]
